FAERS Safety Report 15701292 (Version 4)
Quarter: 2019Q1

REPORT INFORMATION
  Report Type: Report from Study
  Country: US (occurrence: US)
  Receive Date: 20181207
  Receipt Date: 20190117
  Transmission Date: 20190417
  Serious: Yes (Hospitalization)
  Sender: FDA-Public Use
  Company Number: US-ACTELION-A-NJ2018-182323

PATIENT
  Age: 56 Year
  Sex: Female

DRUGS (16)
  1. ATORVASTATIN [Concomitant]
     Active Substance: ATORVASTATIN
  2. METFORMIN [Concomitant]
     Active Substance: METFORMIN HYDROCHLORIDE
  3. PANTOPRAZOLE [Concomitant]
     Active Substance: PANTOPRAZOLE
  4. OPSUMIT [Suspect]
     Active Substance: MACITENTAN
     Indication: PULMONARY ARTERIAL HYPERTENSION
     Dosage: 10 MG, QD
     Route: 048
  5. AMLODIPINE [Concomitant]
     Active Substance: AMLODIPINE BESYLATE
  6. GABAPENTIN. [Concomitant]
     Active Substance: GABAPENTIN
  7. METOLAZONE. [Concomitant]
     Active Substance: METOLAZONE
  8. DIGOX [Concomitant]
     Active Substance: DIGOXIN
  9. VELETRI [Suspect]
     Active Substance: EPOPROSTENOL
     Dosage: 2 NG/KG, PER MIN
     Route: 042
     Dates: start: 20181107
  10. XARELTO [Concomitant]
     Active Substance: RIVAROXABAN
  11. FUROSEMIDE. [Concomitant]
     Active Substance: FUROSEMIDE
  12. SPIRONOLACTON [Concomitant]
     Active Substance: SPIRONOLACTONE
  13. VELETRI [Suspect]
     Active Substance: EPOPROSTENOL
     Dosage: 4 NG/KG, PER MIN
     Route: 042
     Dates: start: 20181105, end: 20190104
  14. VELETRI [Suspect]
     Active Substance: EPOPROSTENOL
     Indication: PULMONARY ARTERIAL HYPERTENSION
     Dosage: 5.342 NG/KG, PER MIN
     Route: 042
     Dates: start: 20181213
  15. POTASSIUM CHLORIDE. [Concomitant]
     Active Substance: POTASSIUM CHLORIDE
  16. ENALAPRIL [Concomitant]
     Active Substance: ENALAPRIL

REACTIONS (7)
  - Headache [Not Recovered/Not Resolved]
  - Nausea [Not Recovered/Not Resolved]
  - Dyspnoea [Unknown]
  - Vision blurred [Not Recovered/Not Resolved]
  - Vomiting [Not Recovered/Not Resolved]
  - Ill-defined disorder [Unknown]
  - Treatment noncompliance [Recovered/Resolved]

NARRATIVE: CASE EVENT DATE: 20181027
